FAERS Safety Report 6977021-8 (Version None)
Quarter: 2010Q3

REPORT INFORMATION
  Report Type: 
  Country: None (occurrence: None)
  Receive Date: 20100910
  Receipt Date: 20100903
  Transmission Date: 20110219
  Serious: Yes (Other)
  Sender: FDA-Public Use
  Company Number: FR-ROCHE-725364

PATIENT
  Age: 62 Year
  Sex: Female

DRUGS (1)
  1. ROACTEMRA [Suspect]
     Dosage: INFUSION
     Route: 042
     Dates: start: 20100402, end: 20100507

REACTIONS (2)
  - LUNG DISORDER [None]
  - URINARY TRACT INFECTION [None]
